FAERS Safety Report 19879584 (Version 1)
Quarter: 2021Q3

REPORT INFORMATION
  Report Type: Spontaneous
  Country: US (occurrence: US)
  Receive Date: 20210924
  Receipt Date: 20210924
  Transmission Date: 20211014
  Serious: No
  Sender: FDA-Public Use
  Company Number: None

PATIENT
  Age: 48 Year
  Sex: Female
  Weight: 132 kg

DRUGS (8)
  1. SODIUM CHLORIDE 100 ML [Concomitant]
  2. DOCUSATE SODIUM. [Concomitant]
     Active Substance: DOCUSATE SODIUM
  3. FERROUS SULFATE. [Concomitant]
     Active Substance: FERROUS SULFATE
  4. LORATADINE. [Concomitant]
     Active Substance: LORATADINE
  5. EPIPEN [Concomitant]
     Active Substance: EPINEPHRINE
  6. ORTHO CYCLEN [Concomitant]
     Active Substance: ETHINYL ESTRADIOL\NORGESTIMATE
  7. REGEN?COV [Suspect]
     Active Substance: CASIRIVIMAB\IMDEVIMAB
     Indication: COVID-19
     Dosage: ?          OTHER FREQUENCY:ONCE;?
     Route: 042
  8. ALBUTEROL INHALER [Concomitant]
     Active Substance: ALBUTEROL

REACTIONS (6)
  - Nausea [None]
  - Hyperhidrosis [None]
  - Infusion related reaction [None]
  - Vomiting [None]
  - Flushing [None]
  - Back pain [None]

NARRATIVE: CASE EVENT DATE: 20210827
